FAERS Safety Report 16396723 (Version 47)
Quarter: 2025Q4

REPORT INFORMATION
  Report Type: Spontaneous
  Country: CA (occurrence: CA)
  Receive Date: 20190606
  Receipt Date: 20251120
  Transmission Date: 20260117
  Serious: Yes (Hospitalization, Other)
  Sender: CELLTRION
  Company Number: CA-CELLTRION INC.-2019CA021493

PATIENT

DRUGS (99)
  1. INFLIXIMAB [Suspect]
     Active Substance: INFLIXIMAB
     Indication: Crohn^s disease
     Dosage: 700 MILLIGRAM
     Route: 042
  2. INFLIXIMAB [Suspect]
     Active Substance: INFLIXIMAB
     Dosage: 700 MILLIGRAM
     Route: 042
  3. INFLIXIMAB [Suspect]
     Active Substance: INFLIXIMAB
     Dosage: 700 MILLIGRAM
     Route: 042
  4. INFLIXIMAB [Suspect]
     Active Substance: INFLIXIMAB
     Dosage: 700 MILLIGRAM
     Route: 042
  5. INFLIXIMAB [Suspect]
     Active Substance: INFLIXIMAB
     Dosage: 700 MILLIGRAM
     Route: 042
  6. INFLIXIMAB [Suspect]
     Active Substance: INFLIXIMAB
     Dosage: 700 MILLIGRAM
     Route: 042
  7. INFLIXIMAB [Suspect]
     Active Substance: INFLIXIMAB
     Dosage: 700 MILLIGRAM
     Route: 042
  8. INFLIXIMAB [Suspect]
     Active Substance: INFLIXIMAB
     Dosage: 800 MILLIGRAM
     Route: 042
  9. INFLIXIMAB [Suspect]
     Active Substance: INFLIXIMAB
     Dosage: 800 MILLIGRAM
     Route: 042
  10. INFLIXIMAB [Suspect]
     Active Substance: INFLIXIMAB
     Dosage: 800 MILLIGRAM
     Route: 042
  11. INFLIXIMAB [Suspect]
     Active Substance: INFLIXIMAB
     Dosage: 800 MILLIGRAM
     Route: 042
  12. INFLIXIMAB [Suspect]
     Active Substance: INFLIXIMAB
     Dosage: 800 MILLIGRAM
     Route: 042
  13. INFLIXIMAB [Suspect]
     Active Substance: INFLIXIMAB
     Dosage: 800 MILLIGRAM
     Route: 042
  14. INFLIXIMAB [Suspect]
     Active Substance: INFLIXIMAB
     Dosage: 800 MILLIGRAM
     Route: 042
  15. INFLIXIMAB [Suspect]
     Active Substance: INFLIXIMAB
     Dosage: 800 MILLIGRAM
     Route: 042
  16. INFLIXIMAB [Suspect]
     Active Substance: INFLIXIMAB
     Dosage: 800 MILLIGRAM
     Route: 042
  17. INFLIXIMAB [Suspect]
     Active Substance: INFLIXIMAB
     Dosage: 800 MILLIGRAM
     Route: 042
  18. INFLIXIMAB [Suspect]
     Active Substance: INFLIXIMAB
     Dosage: 800 MILLIGRAM
     Route: 042
  19. INFLIXIMAB [Suspect]
     Active Substance: INFLIXIMAB
     Dosage: 800 MILLIGRAM
     Route: 042
  20. INFLIXIMAB [Suspect]
     Active Substance: INFLIXIMAB
     Dosage: 800 MILLIGRAM
     Route: 042
  21. INFLIXIMAB [Suspect]
     Active Substance: INFLIXIMAB
     Dosage: 800 MILLIGRAM
     Route: 042
  22. INFLIXIMAB [Suspect]
     Active Substance: INFLIXIMAB
     Dosage: 800 MILLIGRAM
     Route: 042
  23. INFLIXIMAB [Suspect]
     Active Substance: INFLIXIMAB
     Dosage: 800 MILLIGRAM
     Route: 042
  24. INFLIXIMAB [Suspect]
     Active Substance: INFLIXIMAB
     Dosage: 800 MILLIGRAM
     Route: 042
  25. INFLIXIMAB [Suspect]
     Active Substance: INFLIXIMAB
     Dosage: 800 MILLIGRAM
     Route: 042
  26. INFLIXIMAB [Suspect]
     Active Substance: INFLIXIMAB
     Dosage: 800 MILLIGRAM
     Route: 042
  27. INFLIXIMAB [Suspect]
     Active Substance: INFLIXIMAB
     Dosage: 800 MILLIGRAM
     Route: 042
  28. INFLIXIMAB [Suspect]
     Active Substance: INFLIXIMAB
     Dosage: 800 MILLIGRAM
     Route: 042
  29. INFLIXIMAB [Suspect]
     Active Substance: INFLIXIMAB
     Dosage: 800 MILLIGRAM
     Route: 042
  30. INFLIXIMAB [Suspect]
     Active Substance: INFLIXIMAB
     Dosage: 800 MILLIGRAM
     Route: 042
  31. INFLIXIMAB [Suspect]
     Active Substance: INFLIXIMAB
     Dosage: 800 MILLIGRAM
     Route: 042
  32. INFLIXIMAB [Suspect]
     Active Substance: INFLIXIMAB
     Dosage: 800 MILLIGRAM
     Route: 042
  33. INFLIXIMAB [Suspect]
     Active Substance: INFLIXIMAB
     Dosage: 800 MILLIGRAM
     Route: 042
  34. INFLIXIMAB [Suspect]
     Active Substance: INFLIXIMAB
     Dosage: 800 MILLIGRAM
     Route: 042
  35. INFLIXIMAB [Suspect]
     Active Substance: INFLIXIMAB
     Dosage: 800 MILLIGRAM
     Route: 042
  36. INFLIXIMAB [Suspect]
     Active Substance: INFLIXIMAB
     Dosage: 800 MILLIGRAM
     Route: 042
  37. INFLIXIMAB [Suspect]
     Active Substance: INFLIXIMAB
     Dosage: 800 MILLIGRAM
     Route: 042
  38. INFLIXIMAB [Suspect]
     Active Substance: INFLIXIMAB
     Dosage: 800 MILLIGRAM
     Route: 042
  39. INFLIXIMAB [Suspect]
     Active Substance: INFLIXIMAB
     Dosage: 800 MILLIGRAM
     Route: 042
  40. INFLIXIMAB [Suspect]
     Active Substance: INFLIXIMAB
     Dosage: 800 MILLIGRAM
     Route: 042
  41. INFLIXIMAB [Suspect]
     Active Substance: INFLIXIMAB
     Dosage: 800 MILLIGRAM
     Route: 042
  42. INFLIXIMAB [Suspect]
     Active Substance: INFLIXIMAB
     Dosage: 800 MILLIGRAM
     Route: 042
  43. INFLIXIMAB [Suspect]
     Active Substance: INFLIXIMAB
     Dosage: 800 MILLIGRAM
     Route: 042
  44. INFLIXIMAB [Suspect]
     Active Substance: INFLIXIMAB
     Dosage: 400 MILLIGRAM
     Route: 042
  45. INFLIXIMAB [Suspect]
     Active Substance: INFLIXIMAB
     Dosage: 400 MILLIGRAM
     Route: 042
  46. INFLIXIMAB [Suspect]
     Active Substance: INFLIXIMAB
     Dosage: 400 MILLIGRAM
     Route: 042
  47. INFLECTRA [Suspect]
     Active Substance: INFLIXIMAB-DYYB
     Indication: Crohn^s disease
     Dosage: 400 MG WEEK  0, 2, 6, THEN EVERY 8 WEEKS
     Route: 042
     Dates: start: 20190403
  48. INFLECTRA [Suspect]
     Active Substance: INFLIXIMAB-DYYB
     Dosage: 400 MG WEEK 0, 2, 6, THEN EVERY 8 WEEKS
     Route: 042
     Dates: start: 20190415
  49. INFLECTRA [Suspect]
     Active Substance: INFLIXIMAB-DYYB
     Dosage: 400 MG WEEK Q 0, 2, 6, THEN EVERY 8 WEEKS
     Route: 042
     Dates: start: 20190508
  50. INFLECTRA [Suspect]
     Active Substance: INFLIXIMAB-DYYB
     Dosage: 700 MG, EVERY 8 WEEKS
     Route: 042
     Dates: start: 20190702
  51. INFLECTRA [Suspect]
     Active Substance: INFLIXIMAB-DYYB
     Dosage: 700 MG, EVERY 8 WEEKS
     Route: 042
     Dates: start: 20190828, end: 20190828
  52. INFLECTRA [Suspect]
     Active Substance: INFLIXIMAB-DYYB
     Dosage: 700 MG, EVERY 8 WEEKS
     Route: 042
     Dates: start: 20191023
  53. INFLECTRA [Suspect]
     Active Substance: INFLIXIMAB-DYYB
     Dosage: 700 MG, EVERY 8 WEEKS
     Route: 042
     Dates: start: 20191218, end: 20191218
  54. INFLECTRA [Suspect]
     Active Substance: INFLIXIMAB-DYYB
     Dosage: 700 MG, EVERY 8 WEEKS
     Route: 042
     Dates: start: 20200222, end: 20200222
  55. INFLECTRA [Suspect]
     Active Substance: INFLIXIMAB-DYYB
     Dosage: 700 MG, EVERY 8 WEEKS
     Route: 042
     Dates: start: 20200222, end: 20200222
  56. INFLECTRA [Suspect]
     Active Substance: INFLIXIMAB-DYYB
     Dosage: 700 MG, EVERY 8 WEEKS
     Route: 042
     Dates: start: 20200422, end: 20200422
  57. INFLECTRA [Suspect]
     Active Substance: INFLIXIMAB-DYYB
     Dosage: 800 MG EVERY 8 WEEKS
     Route: 042
     Dates: start: 20200620, end: 20200620
  58. INFLECTRA [Suspect]
     Active Substance: INFLIXIMAB-DYYB
     Dosage: 800 MG EVERY 4 WEEKS
     Route: 042
     Dates: start: 20200718
  59. INFLECTRA [Suspect]
     Active Substance: INFLIXIMAB-DYYB
     Dosage: 800 MG EVERY 4 WEEKS
     Route: 042
     Dates: start: 20200916
  60. INFLECTRA [Suspect]
     Active Substance: INFLIXIMAB-DYYB
     Dosage: 800 MG EVERY 4 WEEKS
     Route: 042
     Dates: start: 20201114, end: 20201114
  61. INFLECTRA [Suspect]
     Active Substance: INFLIXIMAB-DYYB
     Dosage: 800 MG EVERY 4 WEEKS
     Route: 042
     Dates: start: 20201211
  62. INFLECTRA [Suspect]
     Active Substance: INFLIXIMAB-DYYB
     Dosage: 800 MG EVERY 4 WEEKS
     Route: 042
     Dates: start: 20210108
  63. INFLECTRA [Suspect]
     Active Substance: INFLIXIMAB-DYYB
     Dosage: 800 MG EVERY 6 WEEKS
     Route: 042
     Dates: start: 20210227
  64. INFLECTRA [Suspect]
     Active Substance: INFLIXIMAB-DYYB
     Dosage: 800 MG EVERY 6 WEEKS
     Route: 042
     Dates: start: 20210518
  65. INFLECTRA [Suspect]
     Active Substance: INFLIXIMAB-DYYB
     Dosage: 800 MG, AFTER 8 WEEKS AND 4 DAYS (PRESCRIBED EVERY 6 WEEKS)
     Route: 042
     Dates: start: 20210717
  66. INFLECTRA [Suspect]
     Active Substance: INFLIXIMAB-DYYB
     Dosage: 800 MG, AFTER 8 WEEKS AND 4 DAYS (PRESCRIBED EVERY 6 WEEKS)
     Route: 042
     Dates: start: 20210717
  67. INFLECTRA [Suspect]
     Active Substance: INFLIXIMAB-DYYB
     Dosage: 800 MG, AFTER 8 WEEKS AND 4 DAYS (PRESCRIBED EVERY 6 WEEKS)
     Route: 042
     Dates: start: 20210717
  68. INFLECTRA [Suspect]
     Active Substance: INFLIXIMAB-DYYB
     Dosage: 800 MG, AFTER 8 WEEKS AND 4 DAYS (PRESCRIBED EVERY 6 WEEKS)
     Route: 042
     Dates: start: 20210717
  69. INFLECTRA [Suspect]
     Active Substance: INFLIXIMAB-DYYB
     Dosage: 800 MG EVERY 6 WEEKS
     Route: 042
     Dates: start: 20210913
  70. INFLECTRA [Suspect]
     Active Substance: INFLIXIMAB-DYYB
     Dosage: 800 MG EVERY 6 WEEKS
     Route: 042
     Dates: start: 20211025
  71. INFLECTRA [Suspect]
     Active Substance: INFLIXIMAB-DYYB
     Dosage: 800 MG EVERY 6 WEEKS
     Route: 042
     Dates: start: 20211213
  72. INFLECTRA [Suspect]
     Active Substance: INFLIXIMAB-DYYB
     Dosage: 800 MG EVERY 6 WEEKS
     Route: 042
     Dates: start: 20220503
  73. INFLECTRA [Suspect]
     Active Substance: INFLIXIMAB-DYYB
     Dosage: 800 MG EVERY 6 WEEKS
     Route: 042
     Dates: start: 20220628
  74. INFLECTRA [Suspect]
     Active Substance: INFLIXIMAB-DYYB
     Dosage: 800 MG EVERY 6 WEEKS
     Route: 042
     Dates: start: 20220809
  75. INFLECTRA [Suspect]
     Active Substance: INFLIXIMAB-DYYB
     Dosage: 800 MG EVERY 6 WEEKS
     Route: 042
     Dates: start: 20221006
  76. INFLECTRA [Suspect]
     Active Substance: INFLIXIMAB-DYYB
     Dosage: 800 MG EVERY 6 WEEKS
     Route: 042
     Dates: start: 20221114
  77. INFLECTRA [Suspect]
     Active Substance: INFLIXIMAB-DYYB
     Dosage: 800 MG EVERY 6 WEEKS
     Route: 042
     Dates: start: 20221229
  78. INFLECTRA [Suspect]
     Active Substance: INFLIXIMAB-DYYB
     Dosage: 800 MG EVERY 6 WEEKS
     Route: 042
     Dates: start: 20230208
  79. INFLECTRA [Suspect]
     Active Substance: INFLIXIMAB-DYYB
     Dosage: 800 MG EVERY 6 WEEKS
     Route: 042
     Dates: start: 20230620
  80. INFLECTRA [Suspect]
     Active Substance: INFLIXIMAB-DYYB
     Dosage: 800 MG, AFTER 6 WEEK AND 3 DAYS (SUPPOSE TO TAKE EVERY 6 WEEKS)
     Route: 042
     Dates: start: 20230804
  81. INFLECTRA [Suspect]
     Active Substance: INFLIXIMAB-DYYB
     Dosage: 800 MG, EVERY 6 WEEKS
     Route: 042
     Dates: start: 20230915, end: 20230915
  82. INFLECTRA [Suspect]
     Active Substance: INFLIXIMAB-DYYB
     Dosage: 800 MG AFTER 7 WEEKS AND 3 DAYS (PRESCRIBED EVERY 6 WEEK)
     Route: 042
     Dates: start: 20231106
  83. INFLECTRA [Suspect]
     Active Substance: INFLIXIMAB-DYYB
     Dosage: 800 MG AFTER 7 WEEKS 2 DAYS  (PRESCRIBED EVERY 6 WEEK)
     Route: 042
     Dates: start: 20231227
  84. INFLECTRA [Suspect]
     Active Substance: INFLIXIMAB-DYYB
     Dosage: 800 MG, EVERY 6 WEEKS
     Route: 042
     Dates: start: 20240208
  85. INFLECTRA [Suspect]
     Active Substance: INFLIXIMAB-DYYB
     Dosage: 800 MG, AFTER 6 WEEKS AND 4 DAYS (PRESCRIBED EVERY 6 WEEKS)
     Route: 042
     Dates: start: 20240325
  86. INFLECTRA [Suspect]
     Active Substance: INFLIXIMAB-DYYB
     Dosage: 800 MG, AFTER 8 WEEKS AND 5 DAYS (EVERY 6 WEEKS)
     Route: 042
     Dates: start: 20240614
  87. INFLECTRA [Suspect]
     Active Substance: INFLIXIMAB-DYYB
     Dosage: 800 MG,  AFTER 8 WEEKS AND 5 DAYS (EVERY 6 WEEKS)
     Route: 042
     Dates: start: 20240814
  88. INFLECTRA [Suspect]
     Active Substance: INFLIXIMAB-DYYB
     Dosage: 800 MG, EVERY 6 WEEKS
     Route: 042
     Dates: start: 20240926
  89. INFLECTRA [Suspect]
     Active Substance: INFLIXIMAB-DYYB
     Dosage: 800 MG, EVERY 6 WEEKS
     Route: 042
     Dates: start: 20241107
  90. INFLECTRA [Suspect]
     Active Substance: INFLIXIMAB-DYYB
     Dosage: 800 MG, EVERY 6 WEEKS
     Route: 042
     Dates: start: 20241219
  91. INFLECTRA [Suspect]
     Active Substance: INFLIXIMAB-DYYB
     Dosage: 800 MG, EVERY 6 WEEK
     Route: 042
     Dates: start: 20250318
  92. INFLECTRA [Suspect]
     Active Substance: INFLIXIMAB-DYYB
     Dosage: 800 MG, 6 WEEKS (EVERY 6 WEEKS)
     Route: 042
     Dates: start: 20250429
  93. CODEINE [Concomitant]
     Active Substance: CODEINE
     Dosage: 1 DF, AS NEEDED, 30-50 MG
     Route: 048
     Dates: start: 20190315, end: 201905
  94. CODEINE [Concomitant]
     Active Substance: CODEINE
     Dosage: 1 DF, AS REQURIED
     Route: 048
  95. IMURAN [Concomitant]
     Active Substance: AZATHIOPRINE
     Dosage: 150 MG, 1X/DAY
     Route: 048
     Dates: start: 20190315
  96. METHOTREXATE [Concomitant]
     Active Substance: METHOTREXATE
     Dosage: 15 MG, WEEKLY
     Route: 048
  97. METHOTREXATE [Concomitant]
     Active Substance: METHOTREXATE
     Dosage: 15 MG, WEEKLY
     Route: 042
  98. PREDNISONE [Concomitant]
     Active Substance: PREDNISONE
     Dosage: 35 MG, 1X/DAY/ 1 EVERY 1 DAY
     Route: 048
  99. METHOTREXATE [Concomitant]
     Active Substance: METHOTREXATE
     Dosage: 15 MG 1 EVERY 1 WEEKS
     Route: 048

REACTIONS (39)
  - Condition aggravated [Not Recovered/Not Resolved]
  - Gait disturbance [Not Recovered/Not Resolved]
  - Asthenia [Not Recovered/Not Resolved]
  - Malaise [Not Recovered/Not Resolved]
  - Anal fistula [Not Recovered/Not Resolved]
  - Fistula [Not Recovered/Not Resolved]
  - Drug level above therapeutic [Not Recovered/Not Resolved]
  - Drug level below therapeutic [Not Recovered/Not Resolved]
  - Blood pressure diastolic decreased [Not Recovered/Not Resolved]
  - Malaise [Not Recovered/Not Resolved]
  - Weight increased [Not Recovered/Not Resolved]
  - Body temperature abnormal [Not Recovered/Not Resolved]
  - Nasal congestion [Not Recovered/Not Resolved]
  - Anal fissure [Not Recovered/Not Resolved]
  - Aphthous ulcer [Not Recovered/Not Resolved]
  - Fistula [Not Recovered/Not Resolved]
  - Anal fistula [Not Recovered/Not Resolved]
  - Influenza like illness [Not Recovered/Not Resolved]
  - Heart rate increased [Not Recovered/Not Resolved]
  - Oropharyngeal pain [Not Recovered/Not Resolved]
  - Heart rate decreased [Not Recovered/Not Resolved]
  - Arthralgia [Not Recovered/Not Resolved]
  - Gastrooesophageal reflux disease [Not Recovered/Not Resolved]
  - Rectal haemorrhage [Not Recovered/Not Resolved]
  - Hyperhidrosis [Not Recovered/Not Resolved]
  - Suspected COVID-19 [Not Recovered/Not Resolved]
  - Nausea [Not Recovered/Not Resolved]
  - Pain [Not Recovered/Not Resolved]
  - Nasopharyngitis [Not Recovered/Not Resolved]
  - Dyspepsia [Not Recovered/Not Resolved]
  - Pyrexia [Not Recovered/Not Resolved]
  - Heart rate irregular [Not Recovered/Not Resolved]
  - Off label use [Not Recovered/Not Resolved]
  - Off label use [Not Recovered/Not Resolved]
  - Therapeutic response shortened [Not Recovered/Not Resolved]
  - Intentional product use issue [Not Recovered/Not Resolved]
  - Inappropriate schedule of product administration [Not Recovered/Not Resolved]
  - Underdose [Unknown]
  - Overdose [Unknown]

NARRATIVE: CASE EVENT DATE: 20190501
